FAERS Safety Report 17651454 (Version 2)
Quarter: 2020Q2

REPORT INFORMATION
  Report Type: Spontaneous
  Country: DE (occurrence: DE)
  Receive Date: 20200409
  Receipt Date: 20200625
  Transmission Date: 20200713
  Serious: Yes (Hospitalization, Other)
  Sender: FDA-Public Use
  Company Number: DE-TEVA-2020-DE-1219364

PATIENT
  Age: 61 Year
  Sex: Male
  Weight: 108 kg

DRUGS (8)
  1. VALSARTAN ABZ 160 MG [Suspect]
     Active Substance: VALSARTAN
     Indication: HYPERTENSION
     Dosage: 80 MILLIGRAM DAILY;
     Route: 048
     Dates: start: 201411, end: 2018
  2. DIAZEPAM TROPFEN [Concomitant]
     Dosage: 2-5 MG AS REQUIRED
     Dates: start: 2000
  3. VALSARTAN DURA [Suspect]
     Active Substance: VALSARTAN
     Dosage: 1-0-0
     Dates: start: 2018, end: 2019
  4. METOPROLOL SUCCINAT [Concomitant]
     Dosage: 1-0-0
     Dates: start: 2002
  5. ATORVASTATIN [Concomitant]
     Active Substance: ATORVASTATIN
     Dosage: 0-0-1
     Dates: start: 2002
  6. VALSARTAN 1A PHARMA [Suspect]
     Active Substance: VALSARTAN
     Indication: HYPERTENSION
     Route: 048
  7. ASS 100 [Concomitant]
     Active Substance: ASPIRIN
     Dosage: 0-1-0
     Dates: start: 2002
  8. FINASTERID [Concomitant]
     Active Substance: FINASTERIDE
     Dosage: 1-0-0
     Dates: start: 2016

REACTIONS (1)
  - Malignant melanoma [Unknown]

NARRATIVE: CASE EVENT DATE: 20190823
